FAERS Safety Report 18445021 (Version 2)
Quarter: 2020Q4

REPORT INFORMATION
  Report Type: Spontaneous
  Country: US (occurrence: US)
  Receive Date: 20201030
  Receipt Date: 20201207
  Transmission Date: 20210114
  Serious: No
  Sender: FDA-Public Use
  Company Number: US-ASTRAZENECA-2020SF38254

PATIENT
  Age: 14098 Day
  Sex: Male
  Weight: 154.2 kg

DRUGS (3)
  1. METFORMIN [Concomitant]
     Active Substance: METFORMIN HYDROCHLORIDE
  2. BYDUREON [Suspect]
     Active Substance: EXENATIDE
     Indication: GLYCOSYLATED HAEMOGLOBIN INCREASED
     Route: 058
     Dates: start: 202004
  3. GLIPIZIDE. [Concomitant]
     Active Substance: GLIPIZIDE

REACTIONS (4)
  - Device issue [Unknown]
  - Weight decreased [Not Recovered/Not Resolved]
  - Needle issue [Unknown]
  - Incorrect dose administered by device [Not Recovered/Not Resolved]

NARRATIVE: CASE EVENT DATE: 20201019
